FAERS Safety Report 17226839 (Version 4)
Quarter: 2020Q2

REPORT INFORMATION
  Report Type: Report from Study
  Country: None (occurrence: US)
  Receive Date: 20200102
  Receipt Date: 20200426
  Transmission Date: 20200713
  Serious: Yes (Other)
  Sender: FDA-Public Use
  Company Number: US-ABBVIE-19K-163-3214895-00

PATIENT
  Sex: Female
  Weight: 97.61 kg

DRUGS (4)
  1. HUMIRA [Suspect]
     Active Substance: ADALIMUMAB
     Indication: RHEUMATOID ARTHRITIS
     Route: 058
  2. HUMIRA [Suspect]
     Active Substance: ADALIMUMAB
     Route: 058
     Dates: start: 20190405
  3. METHOTREXATE. [Concomitant]
     Active Substance: METHOTREXATE
     Indication: PRODUCT USED FOR UNKNOWN INDICATION
     Dosage: 8-2.5 MG
     Route: 048
  4. LEUCOVORIN CALCIUM. [Concomitant]
     Active Substance: LEUCOVORIN CALCIUM
     Indication: PRODUCT USED FOR UNKNOWN INDICATION
     Dosage: 1-5 MG TABLET 24 HR. AFTER METHOTREXATE DOSE
     Route: 048

REACTIONS (6)
  - Muscle rupture [Recovering/Resolving]
  - Tendon rupture [Recovered/Resolved]
  - Impaired healing [Recovered/Resolved]
  - Joint dislocation [Recovering/Resolving]
  - Wound infection [Recovered/Resolved]
  - Contusion [Recovering/Resolving]
